FAERS Safety Report 18335054 (Version 1)
Quarter: 2020Q4

REPORT INFORMATION
  Report Type: Spontaneous
  Country: MY (occurrence: MY)
  Receive Date: 20201001
  Receipt Date: 20201001
  Transmission Date: 20210113
  Serious: Yes (Life-Threatening, Hospitalization)
  Sender: FDA-Public Use
  Company Number: MY-NOVITIUMPHARMA-2020MYNVP00073

PATIENT
  Age: 36 Year
  Sex: Male

DRUGS (1)
  1. DAPSONE. [Suspect]
     Active Substance: DAPSONE
     Indication: ANTIFUNGAL PROPHYLAXIS
     Route: 048

REACTIONS (2)
  - Methaemoglobinaemia [Recovering/Resolving]
  - Off label use [Unknown]
